FAERS Safety Report 6927814 (Version 2)
Quarter: 2013Q3

REPORT INFORMATION
  Report Type: Report from Study
  Country: JP (occurrence: JP)
  Receive Date: 20090304
  Receipt Date: 20130722
  Transmission Date: 20140515
  Serious: Yes (Hospitalization)
  Sender: FDA-Public Use
  Company Number: JP-GILEAD-2009-0020598

PATIENT
  Age: 41 Year
  Sex: Male

DRUGS (7)
  1. EMTRICITABINE/TENOFOVIR DISOPROXIL FUMARATE [Suspect]
     Indication: HIV INFECTION
     Dosage: 1 DF, QD
     Route: 048
     Dates: start: 20050524, end: 20130108
  2. STOCRIN [Suspect]
     Indication: HIV INFECTION
     Dosage: UNK
     Route: 048
     Dates: start: 20050425, end: 20080713
  3. PEGINTRON [Concomitant]
     Dates: start: 20060401, end: 20060429
  4. MINOFIT [Concomitant]
     Indication: HEPATITIS C
     Dates: start: 20070418
  5. KOGENATE [Concomitant]
     Dosage: UNK
     Dates: start: 20050412
  6. RIBAVIRIN [Concomitant]
     Dosage: UNK
     Dates: start: 20060401, end: 20060505
  7. PARIET [Concomitant]
     Indication: GASTRITIS
     Dosage: 20 MG, QD
     Dates: start: 20070124, end: 20080323

REACTIONS (1)
  - Arthritis bacterial [Recovered/Resolved]
